FAERS Safety Report 6572006-8 (Version None)
Quarter: 2010Q1

REPORT INFORMATION
  Report Type: 
  Country: None (occurrence: None)
  Receive Date: 20100205
  Receipt Date: 20100122
  Transmission Date: 20100710
  Serious: Yes (Other)
  Sender: FDA-Public Use
  Company Number: BE-PURDUE-GBR-2010-0006052

PATIENT
  Age: 44 Year
  Sex: Male

DRUGS (1)
  1. NON-PMN MORPHINE SULFATE [Suspect]
     Dosage: UNK
     Route: 042

REACTIONS (7)
  - BLOOD PRESSURE SYSTOLIC INCREASED [None]
  - EMBOLISM [None]
  - INJECTION SITE SCAR [None]
  - INTENTIONAL DRUG MISUSE [None]
  - ISCHAEMIA [None]
  - PERIPHERAL ISCHAEMIA [None]
  - VASCULAR PSEUDOANEURYSM [None]
